FAERS Safety Report 10670659 (Version 2)
Quarter: 2015Q1

REPORT INFORMATION
  Report Type: Spontaneous
  Country: US (occurrence: None)
  Receive Date: 20141219
  Receipt Date: 20150225
  Transmission Date: 20150720
  Serious: Yes (Death, Life-Threatening, Hospitalization, Other)
  Sender: FDA-Public Use
  Company Number: ADR-2014-02117

PATIENT
  Age: 45 Year
  Sex: Female

DRUGS (5)
  1. CLONIDINE. [Suspect]
     Active Substance: CLONIDINE
  2. BUPIVACAINE INTRATHECAL [Suspect]
     Active Substance: BUPIVACAINE
  3. FENTANYL. [Suspect]
     Active Substance: FENTANYL
     Indication: PAIN
  4. BACLOFEN. [Suspect]
     Active Substance: BACLOFEN
     Indication: PAIN
  5. MORPHINE INTRATHECAL [Concomitant]
     Active Substance: MORPHINE

REACTIONS (8)
  - Overdose [None]
  - Respiratory distress [None]
  - Loss of consciousness [None]
  - Unresponsive to stimuli [None]
  - Brain death [None]
  - Mydriasis [None]
  - Brain injury [None]
  - Toxicity to various agents [None]

NARRATIVE: CASE EVENT DATE: 20141105
